FAERS Safety Report 21443617 (Version 2)
Quarter: 2022Q4

REPORT INFORMATION
  Report Type: Spontaneous
  Country: FR (occurrence: FR)
  Receive Date: 20221012
  Receipt Date: 20221207
  Transmission Date: 20230112
  Serious: Yes (Hospitalization, Other)
  Sender: FDA-Public Use
  Company Number: FR-JNJFOC-20220759357

PATIENT
  Age: 84 Year
  Sex: Female

DRUGS (14)
  1. TOPIRAMATE [Suspect]
     Active Substance: TOPIRAMATE
     Indication: Ophthalmic migraine
     Dosage: 1 MONTH
     Route: 048
     Dates: start: 20220620, end: 20220722
  2. SPIRONOLACTONE [Concomitant]
     Active Substance: SPIRONOLACTONE
     Indication: Product used for unknown indication
     Dosage: 25MG
  3. PERINDOPRIL [Concomitant]
     Active Substance: PERINDOPRIL
     Indication: Product used for unknown indication
     Dosage: 2.5MG
  4. LEVOTHYROXINE [Concomitant]
     Active Substance: LEVOTHYROXINE
     Indication: Product used for unknown indication
  5. ROSUVASTATIN [Concomitant]
     Active Substance: ROSUVASTATIN
     Indication: Product used for unknown indication
     Dosage: 5MG
  6. LACTIL [LACTULOSE] [Concomitant]
     Indication: Product used for unknown indication
     Dosage: 16MG
  7. PLAVIX [Concomitant]
     Active Substance: CLOPIDOGREL BISULFATE
     Indication: Product used for unknown indication
     Dosage: 75MG
  8. LANSOPRAZOLE [Concomitant]
     Active Substance: LANSOPRAZOLE
     Dosage: 15MG
  9. ALMOTRIPTAN MALATE [Concomitant]
     Active Substance: ALMOTRIPTAN MALATE
     Indication: Migraine with aura
     Dosage: 12.5MG
  10. ACETAMINOPHEN [Concomitant]
     Active Substance: ACETAMINOPHEN
     Dosage: IF NEEDED
  11. EBASTINE [Concomitant]
     Active Substance: EBASTINE
     Dosage: 10
  12. PROMESTRIENE [Concomitant]
     Active Substance: PROMESTRIENE
     Dosage: 10
  13. BETAHISTINE [Concomitant]
     Active Substance: BETAHISTINE
     Dosage: 8MG
  14. DIOSMIN [Concomitant]
     Active Substance: DIOSMIN
     Dosage: 500MG

REACTIONS (12)
  - Hallucination, visual [Not Recovered/Not Resolved]
  - Nausea [Recovered/Resolved]
  - Dizziness [Recovered/Resolved]
  - Alopecia [Recovered/Resolved]
  - Visual impairment [Unknown]
  - Urticaria [Unknown]
  - Amnesia [Unknown]
  - Somnolence [Not Recovered/Not Resolved]
  - Disturbance in attention [Not Recovered/Not Resolved]
  - Depression [Not Recovered/Not Resolved]
  - Headache [Not Recovered/Not Resolved]
  - Decreased appetite [Not Recovered/Not Resolved]

NARRATIVE: CASE EVENT DATE: 20220101
